FAERS Safety Report 7286861-X (Version None)
Quarter: 2011Q1

REPORT INFORMATION
  Report Type: 
  Country: None (occurrence: None)
  Receive Date: 20110211
  Receipt Date: 20110128
  Transmission Date: 20110831
  Serious: Yes (Congenital Anomaly)
  Sender: FDA-Public Use
  Company Number: FR-ROCHE-756589

PATIENT
  Sex: Male
  Weight: 2.6 kg

DRUGS (5)
  1. ROFERON-A [Suspect]
     Route: 064
     Dates: start: 20100801, end: 20110118
  2. SPRYCEL [Suspect]
     Dosage: DAILY
     Route: 064
     Dates: start: 20100505, end: 20100601
  3. SPRYCEL [Suspect]
     Route: 064
     Dates: start: 20100602, end: 20100620
  4. SPRYCEL [Suspect]
     Indication: CHRONIC MYELOID LEUKAEMIA
     Route: 064
     Dates: start: 20100306
  5. ROFERON-A [Suspect]
     Indication: CHRONIC MYELOID LEUKAEMIA
     Route: 064
     Dates: start: 20100713

REACTIONS (1)
  - PYELOCALIECTASIS [None]
